FAERS Safety Report 8849176 (Version 2)
Quarter: 2012Q4

REPORT INFORMATION
  Report Type: Spontaneous
  Country: US (occurrence: None)
  Receive Date: 20121017
  Receipt Date: 20121024
  Transmission Date: 20130627
  Serious: Yes (Other)
  Sender: FDA-Public Use
  Company Number: 2012P1060756

PATIENT
  Age: 4 Year
  Sex: Female
  Weight: 19.5 kg

DRUGS (3)
  1. AMOXICILLIN [Suspect]
     Indication: PROPHYLAXIS URINARY TRACT INFECTION
     Route: 048
     Dates: start: 201209, end: 201209
  2. AMOXICILLIN [Suspect]
     Indication: PROPHYLAXIS URINARY TRACT INFECTION
     Route: 048
     Dates: start: 2012, end: 201210
  3. AMOXICILLIN [Suspect]
     Indication: PROPHYLAXIS URINARY TRACT INFECTION

REACTIONS (6)
  - Psychomotor hyperactivity [None]
  - Mania [None]
  - Abdominal pain upper [None]
  - Insomnia [None]
  - Aggression [None]
  - Disturbance in attention [None]
